FAERS Safety Report 8134933-X (Version None)
Quarter: 2012Q1

REPORT INFORMATION
  Report Type: 
  Country: None (occurrence: None)
  Receive Date: 20120214
  Receipt Date: 20120207
  Transmission Date: 20120608
  Serious: Yes (Other)
  Sender: FDA-Public Use
  Company Number: US-ELI_LILLY_AND_COMPANY-US201202002528

PATIENT
  Sex: Male

DRUGS (1)
  1. HUMALOG [Suspect]
     Indication: TYPE 2 DIABETES MELLITUS
     Dosage: UNK UNK, QID
     Dates: start: 20080701

REACTIONS (6)
  - MULTIPLE MYELOMA [None]
  - MALAISE [None]
  - SKIN CANCER [None]
  - DIABETES MELLITUS INADEQUATE CONTROL [None]
  - NEOPLASM MALIGNANT [None]
  - PAIN [None]
